FAERS Safety Report 8477633-9 (Version None)
Quarter: 2012Q2

REPORT INFORMATION
  Report Type: 
  Country: None (occurrence: None)
  Receive Date: 20120625
  Receipt Date: 20120625
  Transmission Date: 20120825
  Serious: Yes (Hospitalization)
  Sender: FDA-Public Use
  Company Number: None

PATIENT
  Age: 69 Year
  Sex: Female
  Weight: 74.8435 kg

DRUGS (1)
  1. VANCOMYCIN [Suspect]
     Indication: PYELONEPHRITIS
     Dosage: BID IV DRIP
     Route: 041
     Dates: start: 20120403, end: 20120413

REACTIONS (3)
  - FAECAL INCONTINENCE [None]
  - PRODUCT QUALITY ISSUE [None]
  - CLOSTRIDIAL INFECTION [None]
